FAERS Safety Report 13700838 (Version 1)
Quarter: 2017Q2

REPORT INFORMATION
  Report Type: Spontaneous
  Country: US (occurrence: US)
  Receive Date: 20170628
  Receipt Date: 20170628
  Transmission Date: 20170830
  Serious: Yes (Death, Hospitalization)
  Sender: FDA-Public Use
  Company Number: None

PATIENT
  Age: 80 Year
  Sex: Male

DRUGS (1)
  1. WARFARIN [Suspect]
     Active Substance: WARFARIN
     Indication: ATRIAL FIBRILLATION
     Dates: start: 20080608, end: 20170606

REACTIONS (4)
  - Haemorrhage [None]
  - Subdural haematoma [None]
  - Confusional state [None]
  - Haemorrhage intracranial [None]

NARRATIVE: CASE EVENT DATE: 20170606
